FAERS Safety Report 6387005-9 (Version None)
Quarter: 2009Q4

REPORT INFORMATION
  Report Type: 
  Country: None (occurrence: None)
  Receive Date: 20091002
  Receipt Date: 20090924
  Transmission Date: 20100525
  Serious: Yes (Hospitalization)
  Sender: FDA-Public Use
  Company Number: DE-BAXTER-2008BH007237

PATIENT
  Age: 43 Year
  Sex: Female

DRUGS (9)
  1. ENDOXAN BAXTER [Suspect]
     Indication: GLOMERULONEPHRITIS
     Route: 048
     Dates: start: 20020101, end: 20050201
  2. THIAMAZOLE [Suspect]
     Indication: HYPERTHYROIDISM
     Route: 048
  3. PREDNISOLONE [Suspect]
     Indication: GLOMERULONEPHRITIS
     Route: 048
     Dates: start: 20020101
  4. AMLODIPINE [Concomitant]
     Indication: HYPERTENSION
     Route: 048
  5. UROMITEXAN [Concomitant]
     Indication: DRUG USE FOR UNKNOWN INDICATION
     Route: 048
  6. METOPROLOL [Concomitant]
     Indication: HYPERTENSION
     Route: 048
  7. VIOXX [Concomitant]
     Indication: DRUG USE FOR UNKNOWN INDICATION
     Route: 048
  8. ATORVASTATIN [Concomitant]
     Indication: HYPERLIPIDAEMIA
     Route: 048
  9. PANTOZOL [Concomitant]
     Indication: GASTRITIS PROPHYLAXIS
     Route: 048

REACTIONS (2)
  - ABSCESS [None]
  - NEUTROPENIA [None]
